FAERS Safety Report 6280157-0 (Version None)
Quarter: 2009Q3

REPORT INFORMATION
  Report Type: 
  Country: None (occurrence: None)
  Receive Date: 20090723
  Receipt Date: 20090717
  Transmission Date: 20100115
  Serious: Yes (Hospitalization)
  Sender: FDA-Public Use
  Company Number: PHHO2009US09022

PATIENT
  Sex: Female
  Weight: 65.306 kg

DRUGS (6)
  1. CGS 20267 T30748+TAB [Suspect]
     Indication: BREAST CANCER
     Dosage: 2.5MG DAILY
     Route: 048
     Dates: start: 20071015
  2. TRIAMTERENE AND HYDROCHLOROTHIAZIDE [Concomitant]
  3. FIORICET [Concomitant]
  4. PROPRANOLOL HYDROCHLORIDE [Concomitant]
  5. TYLENOL [Concomitant]
  6. DETROL [Concomitant]

REACTIONS (13)
  - APHASIA [None]
  - ATRIAL FIBRILLATION [None]
  - ATROPHY [None]
  - BACTERIAL INFECTION [None]
  - DISORIENTATION [None]
  - ENTEROCOCCAL INFECTION [None]
  - GAIT DISTURBANCE [None]
  - HEADACHE [None]
  - HEART RATE IRREGULAR [None]
  - HYPERTENSION [None]
  - MENTAL STATUS CHANGES [None]
  - PARAESTHESIA [None]
  - TRANSIENT ISCHAEMIC ATTACK [None]
